FAERS Safety Report 4958836-4 (Version None)
Quarter: 2006Q1

REPORT INFORMATION
  Report Type: 
  Country: None (occurrence: None)
  Receive Date: 20060324
  Receipt Date: 20060317
  Transmission Date: 20060701
  Serious: Yes (Hospitalization, Other)
  Sender: FDA-Public Use
  Company Number: HQWYE993814DEC05

PATIENT
  Age: 73 Year
  Sex: Female

DRUGS (10)
  1. RHINADVIL (IBUPROFEN/PSEUDOEPHEDRINE HYDROCHLORIDE, TABLET) [Suspect]
     Indication: NASOPHARYNGITIS
     Dosage: 1 TABLET 1X PER 1 DAY ORAL
     Route: 048
     Dates: start: 20051030, end: 20051030
  2. RHINADVIL (IBUPROFEN/PSEUDOEPHEDRINE HYDROCHLORIDE, TABLET) [Suspect]
     Indication: RHINITIS
     Dosage: 1 TABLET 1X PER 1 DAY ORAL
     Route: 048
     Dates: start: 20051030, end: 20051030
  3. RHINADVIL (IBUPROFEN/PSEUDOEPHEDRINE HYDROCHLORIDE, TABLET) [Suspect]
     Indication: NASOPHARYNGITIS
     Dosage: 1 TABLET 1X PER 1 DAY ORAL
     Route: 048
     Dates: start: 20051101, end: 20051101
  4. RHINADVIL (IBUPROFEN/PSEUDOEPHEDRINE HYDROCHLORIDE, TABLET) [Suspect]
     Indication: RHINITIS
     Dosage: 1 TABLET 1X PER 1 DAY ORAL
     Route: 048
     Dates: start: 20051101, end: 20051101
  5. ANASTROZOLE (ANASTROZOLE,) [Suspect]
     Indication: BREAST CANCER
  6. COTAREG (HYDROCHLOROTHIAZIDE/VALSARTAN,) [Suspect]
     Indication: HYPERTENSION
  7. DISCOTRINE (GLYCERYL TRINITRATE, DISC) [Suspect]
     Indication: CARDIAC DISORDER
  8. LEVOTHYROXINE SODIUM [Suspect]
     Indication: HYPOTHYROIDISM
  9. VASTAREL (TRIMETAZIDINE HYDROCHLORIDE,) [Suspect]
  10. PREVISCAN (FLUINDIONE) [Concomitant]

REACTIONS (13)
  - BRONCHITIS [None]
  - EMBOLISM [None]
  - GENERALISED ERYTHEMA [None]
  - HEART RATE INCREASED [None]
  - HYPOTENSION [None]
  - LOSS OF CONSCIOUSNESS [None]
  - MALAISE [None]
  - OEDEMA [None]
  - PAIN IN EXTREMITY [None]
  - PHLEBITIS [None]
  - SKIN EXFOLIATION [None]
  - VERTIGO [None]
  - WEIGHT INCREASED [None]
